FAERS Safety Report 11156746 (Version 1)
Quarter: 2015Q2

REPORT INFORMATION
  Report Type: Spontaneous
  Country: FR (occurrence: AT)
  Receive Date: 20150602
  Receipt Date: 20150602
  Transmission Date: 20150821
  Serious: Yes (Hospitalization)
  Sender: FDA-Public Use
  Company Number: AT-FRI-1000077135

PATIENT
  Age: 35 Year
  Sex: Female
  Weight: 65 kg

DRUGS (12)
  1. MILNACIPRAN [Suspect]
     Active Substance: MILNACIPRAN
     Dosage: 50 MG
     Route: 065
     Dates: start: 201006, end: 20100825
  2. GLADEM [Suspect]
     Active Substance: SERTRALINE HYDROCHLORIDE
     Dosage: 100 MG
     Route: 065
     Dates: end: 20100826
  3. TEMESTA [Concomitant]
     Active Substance: LORAZEPAM
     Dates: start: 20100826, end: 20100830
  4. ALPRAZOLAM RATIOPHARM [Concomitant]
     Dates: start: 2002, end: 20100825
  5. TRILEPTAL [Suspect]
     Active Substance: OXCARBAZEPINE
     Dosage: 300 MG
     Route: 065
     Dates: start: 20100827, end: 20100827
  6. PANTOLOC [Suspect]
     Active Substance: PANTOPRAZOLE SODIUM
     Dosage: 20 MG
     Route: 065
     Dates: start: 20100827
  7. DEPAKINE CHRONO [Concomitant]
     Active Substance: VALPROATE SODIUM
     Dates: start: 20100827, end: 20100827
  8. PANTOLOC [Suspect]
     Active Substance: PANTOPRAZOLE SODIUM
     Dosage: 40 MG
     Route: 065
     Dates: end: 20100826
  9. GLADEM [Suspect]
     Active Substance: SERTRALINE HYDROCHLORIDE
     Dosage: 150 MG
     Route: 065
     Dates: start: 20100827
  10. ASPIRIN. [Suspect]
     Active Substance: ASPIRIN
     Dosage: 80 MG
     Route: 065
     Dates: end: 20100826
  11. CONCOR [Concomitant]
     Active Substance: BISOPROLOL FUMARATE
     Dates: end: 20100827
  12. TRILEPTAL [Suspect]
     Active Substance: OXCARBAZEPINE
     Indication: DEPRESSION
     Dosage: 1200 MG
     Route: 065

REACTIONS (2)
  - Hyponatraemia [Recovered/Resolved]
  - Hypochloraemia [Recovered/Resolved]

NARRATIVE: CASE EVENT DATE: 20100826
